FAERS Safety Report 13022507 (Version 1)
Quarter: 2016Q4

REPORT INFORMATION
  Report Type: Spontaneous
  Country: SK (occurrence: SK)
  Receive Date: 20161213
  Receipt Date: 20161213
  Transmission Date: 20170207
  Serious: Yes (Death)
  Sender: FDA-Public Use
  Company Number: SK-PFIZER INC-2016569736

PATIENT
  Sex: Male

DRUGS (8)
  1. MOLSIDOMIN [Concomitant]
     Dosage: UNK
  2. TRIMETAZIDIN [Concomitant]
     Dosage: UNK
  3. MEFENOXALONA [Concomitant]
     Dosage: UNK
  4. SUNITINIB MALATE. [Suspect]
     Active Substance: SUNITINIB MALATE
     Indication: CLEAR CELL RENAL CELL CARCINOMA
     Dosage: 50 MG, CYCLIC ( 4 WEEKS TREATMENT/2 WEEKS PAUSE)
  5. TRANDOLAPRIL. [Concomitant]
     Active Substance: TRANDOLAPRIL
     Dosage: UNK
  6. TRAMADOL. [Concomitant]
     Active Substance: TRAMADOL
     Dosage: UNK
  7. SUNITINIB MALATE. [Suspect]
     Active Substance: SUNITINIB MALATE
     Dosage: UNK, CYCLIC (2 WEEKS TREATMENT/1 WEEK PAUSE)
     Dates: start: 201005, end: 201108
  8. ATORVASTATIN [Concomitant]
     Active Substance: ATORVASTATIN
     Dosage: UNK

REACTIONS (14)
  - Cardiopulmonary failure [Fatal]
  - Fatigue [Unknown]
  - Condition aggravated [Unknown]
  - Gastrointestinal toxicity [Unknown]
  - Neoplasm progression [Unknown]
  - Diarrhoea [Unknown]
  - Hypertension [Unknown]
  - Nausea [Unknown]
  - Apathy [Unknown]
  - Hepatic enzyme increased [Unknown]
  - Asthenia [Unknown]
  - Anaemia [Unknown]
  - Blood creatinine increased [Unknown]
  - Decreased appetite [Unknown]

NARRATIVE: CASE EVENT DATE: 20121206
